FAERS Safety Report 18852954 (Version 1)
Quarter: 2021Q1

REPORT INFORMATION
  Report Type: Spontaneous
  Country: ES (occurrence: ES)
  Receive Date: 20210205
  Receipt Date: 20210205
  Transmission Date: 20210420
  Serious: Yes (Death)
  Sender: FDA-Public Use
  Company Number: ES-PFIZER INC-2021104149

PATIENT
  Age: 58 Year
  Sex: Female

DRUGS (3)
  1. METHYLPREDNISOLONE SODIUM SUCCINATE. [Suspect]
     Active Substance: METHYLPREDNISOLONE SODIUM SUCCINATE
     Indication: COVID-19 PNEUMONIA
     Dosage: 40 MG, 1X/DAY
     Route: 042
     Dates: start: 20200407, end: 20200416
  2. TOCILIZUMAB. [Suspect]
     Active Substance: TOCILIZUMAB
     Indication: COVID-19 PNEUMONIA
     Dosage: 600 MG, SINGLE
     Route: 042
     Dates: start: 20200409, end: 20200409
  3. HYDROCORTISONE. [Suspect]
     Active Substance: HYDROCORTISONE
     Indication: COVID-19 PNEUMONIA
     Dosage: 200 MG, 2X/DAY
     Route: 042
     Dates: start: 20200408, end: 20200408

REACTIONS (2)
  - Off label use [Unknown]
  - Large intestine perforation [Fatal]

NARRATIVE: CASE EVENT DATE: 20200416
